FAERS Safety Report 10901561 (Version 1)
Quarter: 2015Q1

REPORT INFORMATION
  Report Type: Spontaneous
  Country: PL (occurrence: PL)
  Receive Date: 20150310
  Receipt Date: 20150310
  Transmission Date: 20150721
  Serious: Yes (Other)
  Sender: FDA-Public Use
  Company Number: PL-SA-2015SA027289

PATIENT
  Age: 71 Year
  Sex: Male
  Weight: 99 kg

DRUGS (1)
  1. TAXOTERE [Suspect]
     Active Substance: DOCETAXEL
     Indication: PROSTATE CANCER
     Dosage: DOSE 135
     Route: 042
     Dates: start: 20140715, end: 20140715

REACTIONS (3)
  - Loss of consciousness [Unknown]
  - Hyperhidrosis [Unknown]
  - Lividity [Unknown]

NARRATIVE: CASE EVENT DATE: 20140715
